FAERS Safety Report 15348390 (Version 2)
Quarter: 2018Q3

REPORT INFORMATION
  Report Type: Report from Study
  Country: JP (occurrence: JP)
  Receive Date: 20180904
  Receipt Date: 20180920
  Transmission Date: 20181010
  Serious: Yes (Other)
  Sender: FDA-Public Use
  Company Number: JP-JNJFOC-20180842333

PATIENT
  Age: 82 Year
  Sex: Male
  Weight: 48.8 kg

DRUGS (1)
  1. IMBRUVICA [Suspect]
     Active Substance: IBRUTINIB
     Indication: MANTLE CELL LYMPHOMA RECURRENT
     Route: 048
     Dates: start: 20170606

REACTIONS (1)
  - Spinal compression fracture [Recovering/Resolving]

NARRATIVE: CASE EVENT DATE: 20171213
